FAERS Safety Report 8401522 (Version 9)
Quarter: 2012Q4

REPORT INFORMATION
  Report Type: 
  Country: GB (occurrence: GB)
  Receive Date: 20120210
  Receipt Date: 20120926
  Transmission Date: 20130627
  Serious: Yes (Hospitalization, Other)
  Sender: FDA-Public Use
  Company Number: PHFR2012GB001037

PATIENT
  Age: 41 Year
  Sex: Male
  Weight: 70 kg

DRUGS (1)
  1. CLOZARIL [Suspect]
     Indication: SCHIZOPHRENIA
     Route: 048
     Dates: start: 20070129, end: 20120528

REACTIONS (11)
  - Mental impairment [Unknown]
  - Psychotic disorder [Unknown]
  - Neoplasm malignant [Unknown]
  - Terminal state [Unknown]
  - White blood cell count decreased [Recovered/Resolved]
  - Platelet count decreased [Not Recovered/Not Resolved]
  - Differential white blood cell count abnormal [Recovered/Resolved]
  - Alanine aminotransferase increased [Unknown]
  - White blood cell count increased [Recovered/Resolved]
  - Lower respiratory tract infection [Recovered/Resolved]
  - Neutrophilia [Recovered/Resolved]
